FAERS Safety Report 23564744 (Version 2)
Quarter: 2024Q1

REPORT INFORMATION
  Report Type: Spontaneous
  Country: DZ (occurrence: None)
  Receive Date: 20240226
  Receipt Date: 20240229
  Transmission Date: 20240410
  Serious: Yes (Death)
  Sender: FDA-Public Use
  Company Number: DZ-ROCHE-3512778

PATIENT
  Age: 70 Year
  Sex: Male

DRUGS (2)
  1. ERIVEDGE [Suspect]
     Active Substance: VISMODEGIB
     Indication: Basal cell carcinoma
     Route: 048
  2. ERIVEDGE [Suspect]
     Active Substance: VISMODEGIB
     Indication: Metastases to lung

REACTIONS (1)
  - Death [Fatal]

NARRATIVE: CASE EVENT DATE: 20231212
